FAERS Safety Report 5279948-4 (Version None)
Quarter: 2007Q1

REPORT INFORMATION
  Report Type: 
  Country: None (occurrence: None)
  Receive Date: 20061215
  Receipt Date: 20060726
  Transmission Date: 20070707
  Serious: Yes (Other)
  Sender: FDA-Public Use
  Company Number: HQWYE422727JUL06

PATIENT
  Sex: Female
  Weight: 104.42 kg

DRUGS (1)
  1. EFFEXOR XR [Suspect]
     Indication: DEPRESSION
     Dosage: 1 CAPSULE 1X PER 1 DAY, ORAL; ^ ONCE ^ ABOUT 3-4 YEARS AGO
     Route: 048

REACTIONS (1)
  - VOMITING [None]
